FAERS Safety Report 5226435-5 (Version None)
Quarter: 2007Q1

REPORT INFORMATION
  Report Type: 
  Country: None (occurrence: None)
  Receive Date: 20070201
  Receipt Date: 20070122
  Transmission Date: 20070707
  Serious: Yes (Hospitalization)
  Sender: FDA-Public Use
  Company Number: FR-ELI_LILLY_AND_COMPANY-FR200603005242

PATIENT
  Age: 62 Year
  Sex: Female

DRUGS (2)
  1. FORTEO [Suspect]
     Indication: OSTEOPOROSIS
     Dosage: 20 UG, DAILY (1/D)
     Route: 058
     Dates: start: 20060307
  2. DEBRIDAT [Concomitant]
     Route: 065
     Dates: start: 20040101

REACTIONS (7)
  - ABDOMINAL PAIN [None]
  - ABSCESS INTESTINAL [None]
  - HAEMORRHOIDS [None]
  - INCISIONAL HERNIA [None]
  - INTESTINAL PERFORATION [None]
  - PYREXIA [None]
  - VOMITING [None]
